FAERS Safety Report 5706991-0 (Version None)
Quarter: 2008Q2

REPORT INFORMATION
  Report Type: 
  Country: None (occurrence: None)
  Receive Date: 20080416
  Receipt Date: 20080409
  Transmission Date: 20081010
  Serious: Yes (Other)
  Sender: FDA-Public Use
  Company Number: FR-RB-000754-08

PATIENT
  Age: 34 Year
  Sex: Female

DRUGS (4)
  1. BUPRENORPHINE HYDROCHLORIDE [Suspect]
     Route: 065
  2. BUPRENORPHINE HYDROCHLORIDE [Suspect]
     Route: 065
  3. CANNABIS [Suspect]
     Indication: DRUG USE FOR UNKNOWN INDICATION
     Dosage: 2-6 CIGARETTES DAILY.
     Route: 065
  4. CANNABIS [Suspect]
     Dosage: 3-4 CIGARETTES WEEKLY.
     Route: 065

REACTIONS (2)
  - CEREBRAL HAEMORRHAGE [None]
  - CEREBROVASCULAR SPASM [None]
